FAERS Safety Report 9412414 (Version 2)
Quarter: 2014Q1

REPORT INFORMATION
  Report Type: Report from Study
  Country: US (occurrence: US)
  Receive Date: 20130722
  Receipt Date: 20140107
  Transmission Date: 20141002
  Serious: Yes (Hospitalization)
  Sender: FDA-Public Use
  Company Number: US-SANOFI-AVENTIS-2013SA072897

PATIENT
  Age: 54 Year
  Sex: Female
  Weight: 98 kg

DRUGS (9)
  1. ELOXATIN [Suspect]
     Route: 042
     Dates: start: 20100729, end: 20100729
  2. 5-FU [Suspect]
     Route: 042
     Dates: start: 20100729, end: 20100729
  3. 5-FU [Suspect]
     Route: 042
     Dates: start: 20100830, end: 20100830
  4. 5-FU [Suspect]
     Route: 042
     Dates: start: 20101028, end: 20101028
  5. BEVACIZUMAB [Suspect]
     Route: 042
     Dates: start: 20100729, end: 20100729
  6. LEUCOVORIN CALCIUM [Suspect]
     Route: 042
     Dates: start: 20100729, end: 20100729
  7. GLYBURIDE [Concomitant]
  8. PERCOCET [Concomitant]
  9. MS CONTIN [Concomitant]

REACTIONS (2)
  - Superior vena cava syndrome [Recovered/Resolved]
  - Swelling [Recovered/Resolved]
